FAERS Safety Report 20862955 (Version 2)
Quarter: 2022Q2

REPORT INFORMATION
  Report Type: Spontaneous
  Country: US (occurrence: US)
  Receive Date: 20220523
  Receipt Date: 20220531
  Transmission Date: 20220721
  Serious: Yes (Other)
  Sender: FDA-Public Use
  Company Number: US-ALLERGAN-2216449US

PATIENT
  Sex: Male

DRUGS (1)
  1. REFRESH CLASSIC [Suspect]
     Active Substance: POLYVINYL ALCOHOL\POVIDONE
     Indication: Dry eye
     Dosage: 1 TO 2 DROP IN EACH EYE 1 TO 2 TIMES A DAY
     Route: 047

REACTIONS (8)
  - Cerebral haemorrhage [Unknown]
  - Loss of consciousness [Unknown]
  - Concussion [Unknown]
  - Dizziness [Unknown]
  - Memory impairment [Not Recovered/Not Resolved]
  - Product formulation issue [Unknown]
  - Eye pain [Not Recovered/Not Resolved]
  - Eye irritation [Not Recovered/Not Resolved]

NARRATIVE: CASE EVENT DATE: 20220101
